FAERS Safety Report 24718765 (Version 1)
Quarter: 2024Q4

REPORT INFORMATION
  Report Type: Spontaneous
  Country: US (occurrence: US)
  Receive Date: 20241210
  Receipt Date: 20241210
  Transmission Date: 20250114
  Serious: No
  Sender: PFIZER
  Company Number: US-PFIZER INC-202400316730

PATIENT
  Sex: Male

DRUGS (1)
  1. NIVESTYM [Suspect]
     Active Substance: FILGRASTIM-AAFI
     Indication: White blood cell count decreased
     Dosage: UNK

REACTIONS (6)
  - Bone disorder [Unknown]
  - Pyrexia [Unknown]
  - Myalgia [Unknown]
  - Muscle tightness [Unknown]
  - Insomnia [Unknown]
  - Pain [Unknown]
